FAERS Safety Report 6667411-5 (Version None)
Quarter: 2010Q2

REPORT INFORMATION
  Report Type: 
  Country: None (occurrence: None)
  Receive Date: 20100405
  Receipt Date: 20100326
  Transmission Date: 20101027
  Serious: Yes (Other)
  Sender: FDA-Public Use
  Company Number: JP-ASTRAZENECA-2010SE07077

PATIENT
  Age: 36 Year
  Sex: Female

DRUGS (7)
  1. BRICANYL [Suspect]
     Indication: ASTHMA
     Dosage: AS REQUIRED
     Route: 055
     Dates: start: 20100122, end: 20100126
  2. BRICANYL [Suspect]
     Dosage: AS REQUIRED
     Route: 048
     Dates: start: 20100130
  3. PULMICORT [Suspect]
     Indication: ASTHMA
     Dosage: NUMBER OF SEPARATE DOSAGES UNKNOWN
     Route: 055
     Dates: start: 20091216
  4. SULTANOL [Suspect]
     Indication: ASTHMA
     Dosage: DOSE UNKNOWN, AS REQUIRED
     Route: 055
     Dates: start: 20091216, end: 20100121
  5. SULTANOL [Suspect]
     Dosage: DOSE UNKNOWN, AS REQUIRED
     Route: 055
     Dates: start: 20100126
  6. ONON [Concomitant]
     Indication: ASTHMA
     Dosage: NUMBER OF SEPARATE DOSAGES UNKNOWN
     Route: 048
     Dates: start: 20091015, end: 20100125
  7. MEPTIN [Concomitant]
     Indication: ASTHMA
     Dates: start: 19860101, end: 20100122

REACTIONS (2)
  - ABORTION SPONTANEOUS [None]
  - DRUG EXPOSURE DURING PREGNANCY [None]
